FAERS Safety Report 21310615 (Version 1)
Quarter: 2022Q3

REPORT INFORMATION
  Report Type: Spontaneous
  Country: DE (occurrence: DE)
  Receive Date: 20220909
  Receipt Date: 20220909
  Transmission Date: 20221027
  Serious: No
  Sender: FDA-Public Use
  Company Number: DE-ALKEM LABORATORIES LIMITED-DE-ALKEM-2022-06514

PATIENT
  Sex: Female
  Weight: 46 kg

DRUGS (4)
  1. DEFERASIROX [Suspect]
     Active Substance: DEFERASIROX
     Indication: Myelodysplastic syndrome
     Dosage: 630 MILLIGRAM EVERY 1 DAY
     Route: 065
     Dates: start: 20220108, end: 20220425
  2. DEFERASIROX [Suspect]
     Active Substance: DEFERASIROX
     Indication: Red blood cell transfusion
     Dosage: 630 MILLIGRAM EVERY 1 DAY
     Route: 065
     Dates: start: 20220526
  3. LEVOTHYROXINE [Suspect]
     Active Substance: LEVOTHYROXINE
     Indication: Autoimmune thyroiditis
     Dosage: UNK
     Route: 065
  4. ASPIRIN [Concomitant]
     Active Substance: ASPIRIN
     Indication: Haemorrhage
     Dosage: UNK
     Route: 065

REACTIONS (13)
  - Weight decreased [Not Recovered/Not Resolved]
  - Night sweats [Not Recovered/Not Resolved]
  - Osteoarthritis [Unknown]
  - Dysgeusia [Recovered/Resolved]
  - Renal pain [Recovered/Resolved]
  - Osteoporosis [Unknown]
  - Arthropathy [Not Recovered/Not Resolved]
  - Malaise [Unknown]
  - Mental disorder [Not Recovered/Not Resolved]
  - Drug ineffective [Unknown]
  - Mobility decreased [Unknown]
  - Bone marrow oedema [Unknown]
  - Serum ferritin increased [Not Recovered/Not Resolved]

NARRATIVE: CASE EVENT DATE: 20220101
